FAERS Safety Report 4756887-6 (Version None)
Quarter: 2005Q3

REPORT INFORMATION
  Report Type: 
  Country: None (occurrence: None)
  Receive Date: 20050830
  Receipt Date: 20050624
  Transmission Date: 20060218
  Serious: No
  Sender: FDA-Public Use
  Company Number: US-GLAXOSMITHKLINE-A0564122A

PATIENT
  Age: 58 Year
  Sex: Male

DRUGS (18)
  1. AVODART [Suspect]
     Indication: DIHYDROTESTOSTERONE INCREASED
     Dosage: .5MG PER DAY
     Route: 048
     Dates: start: 20050528
  2. LIPITOR [Concomitant]
  3. LEXAPRO [Concomitant]
  4. ANDROGEL [Concomitant]
  5. ZINC [Concomitant]
  6. ALPHA LIPOID ACID [Concomitant]
  7. ASCORBIC ACID [Concomitant]
  8. VITAMIN B COMPLEX CAP [Concomitant]
  9. ASPIRIN [Concomitant]
  10. CHROMIUM [Concomitant]
  11. COENZYME Q10 [Concomitant]
  12. GLUCOSAMINE [Concomitant]
  13. LUTEIN [Concomitant]
  14. MAGNESIUM CITRATE [Concomitant]
  15. NIACIN [Concomitant]
  16. OMEGA-3 [Concomitant]
  17. PYCNOGENOL [Concomitant]
  18. SELENIUM SULFIDE [Concomitant]

REACTIONS (2)
  - DIHYDROTESTOSTERONE INCREASED [None]
  - DRUG INEFFECTIVE [None]
